FAERS Safety Report 12080989 (Version 1)
Quarter: 2016Q1

REPORT INFORMATION
  Report Type: Spontaneous
  Country: KN (occurrence: KN)
  Receive Date: 20160216
  Receipt Date: 20160216
  Transmission Date: 20160526
  Serious: Yes (Other)
  Sender: FDA-Public Use
  Company Number: KN-JNJFOC-20160212591

PATIENT
  Sex: Male

DRUGS (1)
  1. CONCERTA [Suspect]
     Active Substance: METHYLPHENIDATE HYDROCHLORIDE
     Indication: PRODUCT USED FOR UNKNOWN INDICATION
     Route: 048
     Dates: end: 2016

REACTIONS (5)
  - Vision blurred [Unknown]
  - Blindness [Not Recovered/Not Resolved]
  - Dry eye [Unknown]
  - Tooth loss [Unknown]
  - Aptyalism [Unknown]

NARRATIVE: CASE EVENT DATE: 2015
